FAERS Safety Report 15691824 (Version 2)
Quarter: 2018Q4

REPORT INFORMATION
  Report Type: Spontaneous
  Country: BR (occurrence: BR)
  Receive Date: 20181205
  Receipt Date: 20181211
  Transmission Date: 20190205
  Serious: Yes (Hospitalization, Other)
  Sender: FDA-Public Use
  Company Number: BR-PFIZER INC-2018495105

PATIENT
  Age: 68 Year
  Sex: Male

DRUGS (4)
  1. LORAX [Suspect]
     Active Substance: LORAZEPAM
     Dosage: HALF A TABLET AT NIGHT
     Dates: end: 201810
  2. FLUOXETINE [Concomitant]
     Active Substance: FLUOXETINE HYDROCHLORIDE
     Dosage: UNK
     Dates: start: 2009
  3. LORAX [Suspect]
     Active Substance: LORAZEPAM
     Dosage: HALF A TABLET IN THE MORNING AND A HALF AT NIGHT
  4. LORAX [Suspect]
     Active Substance: LORAZEPAM
     Indication: ANXIETY
     Dosage: 2 TABLETS A DAY, 1 IN THE MORNING AND ANOTHER ONE AT NIGHT
     Dates: start: 1998

REACTIONS (3)
  - Throat cancer [Recovered/Resolved]
  - Dysphonia [Not Recovered/Not Resolved]
  - Wrong technique in product usage process [Not Recovered/Not Resolved]

NARRATIVE: CASE EVENT DATE: 2007
